FAERS Safety Report 6872216-6 (Version None)
Quarter: 2010Q3

REPORT INFORMATION
  Report Type: 
  Country: None (occurrence: None)
  Receive Date: 20100723
  Receipt Date: 20100715
  Transmission Date: 20110219
  Serious: Yes (Other)
  Sender: FDA-Public Use
  Company Number: CA-AMGEN-KDL422695

PATIENT
  Sex: Male

DRUGS (6)
  1. ENBREL [Suspect]
     Indication: RHEUMATOID ARTHRITIS
     Route: 058
     Dates: start: 20050101
  2. VENTOLIN [Concomitant]
  3. SYMBICORT [Concomitant]
  4. ARTHROTEC [Concomitant]
     Dates: start: 20090709
  5. PLAQUENIL [Concomitant]
     Dates: start: 20090709
  6. TYLENOL W/ CODEINE NO. 3 [Concomitant]
     Dates: start: 20090705

REACTIONS (3)
  - CHRONIC OBSTRUCTIVE PULMONARY DISEASE [None]
  - DYSPNOEA [None]
  - RESPIRATORY TRACT INFECTION [None]
